FAERS Safety Report 25524877 (Version 1)
Quarter: 2025Q3

REPORT INFORMATION
  Report Type: Spontaneous
  Country: EU (occurrence: EU)
  Receive Date: 20250707
  Receipt Date: 20250707
  Transmission Date: 20251021
  Serious: Yes (Death)
  Sender: MERCK SHARP & DOHME LLC
  Company Number: EU-009507513-2298155

PATIENT
  Age: 15 Year
  Sex: Male

DRUGS (1)
  1. CILASTATIN\IMIPENEM\RELEBACTAM [Suspect]
     Active Substance: CILASTATIN\IMIPENEM\RELEBACTAM
     Indication: Pneumonia pseudomonal
     Dosage: 750 MG EVERY 6 HOURS

REACTIONS (4)
  - Death [Fatal]
  - Drug ineffective [Unknown]
  - Blood culture positive [Unknown]
  - Off label use [Unknown]

NARRATIVE: CASE EVENT DATE: 20250101
